FAERS Safety Report 8177180-8 (Version None)
Quarter: 2012Q1

REPORT INFORMATION
  Report Type: 
  Country: None (occurrence: None)
  Receive Date: 20120124
  Receipt Date: 20111206
  Transmission Date: 20120608
  Serious: No
  Sender: FDA-Public Use
  Company Number: US-007089

PATIENT
  Age: 57 Year
  Sex: Male
  Weight: 85.2762 kg

DRUGS (7)
  1. UROXATRAL [Concomitant]
  2. FIRMAGON [Suspect]
     Indication: PROSTATE CANCER
     Dosage: (240 MG 1X SUBCUTANEOUS)
     Route: 058
     Dates: start: 20110819, end: 20110819
  3. CALCIUM WITH VITAMIN D /00944201/ [Concomitant]
  4. XANAX [Concomitant]
  5. WARFARNI [Concomitant]
  6. NEXIUM /01479303/ [Concomitant]
  7. PHENERGAN [Concomitant]

REACTIONS (8)
  - INJECTION SITE PAIN [None]
  - INJECTION SITE NODULE [None]
  - INJECTION SITE ERYTHEMA [None]
  - LYMPHOCELE [None]
  - HYPERSENSITIVITY [None]
  - THROMBOSIS [None]
  - DRUG HYPERSENSITIVITY [None]
  - BLISTER [None]
